FAERS Safety Report 10266210 (Version 1)
Quarter: 2014Q2

REPORT INFORMATION
  Report Type: Report from Study
  Country: BR (occurrence: BR)
  Receive Date: 20140627
  Receipt Date: 20140627
  Transmission Date: 20141212
  Serious: Yes (Other)
  Sender: FDA-Public Use
  Company Number: BR-ABBVIE-14P-020-1250029-00

PATIENT
  Age: 51 Year
  Sex: Female
  Weight: 74.5 kg

DRUGS (5)
  1. HUMIRA [Suspect]
     Indication: RHEUMATOID ARTHRITIS
     Route: 058
     Dates: start: 20090101, end: 201212
  2. ETANERCEPT [Concomitant]
     Indication: ARTHRITIS
     Dosage: ONE INJECTION PER WEEK
     Dates: start: 201212
  3. LEFLUNOMIDE [Concomitant]
     Indication: ARTHRITIS
     Dosage: AT NIGHT
     Route: 048
  4. OLMESARTANA MEDOXOMILA/HYDROCHLOROTHIAZIDE (BENICAR HCT) [Concomitant]
     Indication: BLOOD PRESSURE ABNORMAL
     Dosage: IN MORNING IN FASTING
     Route: 048
     Dates: start: 2011
  5. MAGISTRAL FORMULA [Concomitant]
     Indication: ARTHRITIS
     Dosage: PREDNISONE/MELOXICAM/FLUOXETINE/FOLIC ACID /CODEINE / FAMOTIDINE
     Route: 048
     Dates: start: 2000

REACTIONS (4)
  - Unevaluable event [Unknown]
  - Bone disorder [Unknown]
  - Arthropathy [Unknown]
  - Localised infection [Recovered/Resolved]
